FAERS Safety Report 5716461-1 (Version None)
Quarter: 2008Q2

REPORT INFORMATION
  Report Type: 
  Country: None (occurrence: None)
  Receive Date: 20080424
  Receipt Date: 20080416
  Transmission Date: 20081010
  Serious: Yes (Hospitalization)
  Sender: FDA-Public Use
  Company Number: CA-WYE-H03681208

PATIENT
  Age: 47 Year
  Sex: Male

DRUGS (6)
  1. PANTO [Suspect]
     Indication: GASTROINTESTINAL DISORDER
     Dosage: 40 MG EVERY 1 TOT
     Route: 042
     Dates: start: 20070522, end: 20070522
  2. FISH OIL [Concomitant]
     Route: 048
  3. TYLENOL [Concomitant]
     Dosage: 325 MG (FREQUENCY UNSPECIFIED)
     Route: 048
  4. CENTRUM [Concomitant]
     Route: 048
  5. ASPIRIN 10GR TIMED DISINTEGRATION TAB [Concomitant]
     Route: 048
  6. GLUCOSAMINE [Concomitant]
     Route: 048

REACTIONS (4)
  - ABDOMINAL PAIN [None]
  - FEELING ABNORMAL [None]
  - SKIN TIGHTNESS [None]
  - VENTRICULAR TACHYCARDIA [None]
